FAERS Safety Report 7643588-X (Version None)
Quarter: 2011Q3

REPORT INFORMATION
  Report Type: 
  Country: None (occurrence: None)
  Receive Date: 20110722
  Receipt Date: 20110706
  Transmission Date: 20111222
  Serious: Yes (Other)
  Sender: FDA-Public Use
  Company Number: 2011MA001150

PATIENT
  Age: 66 Year
  Sex: Female
  Weight: 55.9739 kg

DRUGS (42)
  1. FLEXERIL [Concomitant]
  2. ALLOPURINOL [Concomitant]
  3. MENEST [Concomitant]
  4. OXYCONTIN [Concomitant]
  5. PREDNISONE [Concomitant]
  6. PROTONIX [Concomitant]
  7. AMBIEN [Concomitant]
  8. BUSPAR [Concomitant]
  9. ANTIVAN [Concomitant]
  10. ASPIRIN [Concomitant]
  11. NEXIUM [Concomitant]
  12. SEREVENT [Concomitant]
  13. IMIPRAMINE [Concomitant]
  14. METOCLOPRAMIDE [Suspect]
     Dosage: 10 MG, QID, PO
     Route: 048
     Dates: start: 20090306, end: 20100628
  15. DOXEPIN HCL [Concomitant]
  16. PATANOL [Concomitant]
  17. PERCOCET [Concomitant]
  18. FLONASE [Concomitant]
  19. PROAIR HFA [Concomitant]
  20. VICODIN [Concomitant]
  21. LIDOCAINE [Concomitant]
  22. VALTREX [Concomitant]
  23. CLONIDINE [Concomitant]
  24. LOVASTATIN [Concomitant]
  25. QVAR 40 [Concomitant]
  26. PROZAC [Concomitant]
  27. MS CONTIN [Concomitant]
  28. COLCHICINE [Concomitant]
  29. ALBUTEROL [Concomitant]
  30. NASALCROM [Concomitant]
  31. TRAZODONE HYDROCHLORIDE [Concomitant]
  32. VERAPAMIL [Concomitant]
  33. NAPROXEN [Concomitant]
  34. HYDROCHLOROTHIAZIDE [Concomitant]
  35. AMOXICILLIN [Concomitant]
  36. TOPAMAX [Concomitant]
  37. COZAAR [Concomitant]
  38. NORTRIPTYLINE HCL [Concomitant]
  39. NORVASC [Concomitant]
  40. ZYRTEC [Concomitant]
  41. VICODIN [Concomitant]
  42. MECLIZINE [Concomitant]

REACTIONS (47)
  - TONGUE BITING [None]
  - TINNITUS [None]
  - GLOMERULAR FILTRATION RATE DECREASED [None]
  - HYPERTENSION [None]
  - SPINAL COLUMN STENOSIS [None]
  - DEHYDRATION [None]
  - MIDDLE INSOMNIA [None]
  - PARAESTHESIA [None]
  - DEPRESSION [None]
  - ANXIETY [None]
  - DIZZINESS [None]
  - ONYCHOMYCOSIS [None]
  - LIPOMA [None]
  - CONTUSION [None]
  - MENISCUS LESION [None]
  - LIGAMENT DISORDER [None]
  - CONDITION AGGRAVATED [None]
  - DYSKINESIA [None]
  - ECONOMIC PROBLEM [None]
  - HYPOAESTHESIA [None]
  - BLOOD CREATININE INCREASED [None]
  - LIP DISORDER [None]
  - EMOTIONAL DISORDER [None]
  - PARANOIA [None]
  - GLOSSODYNIA [None]
  - MUSCLE TWITCHING [None]
  - HEADACHE [None]
  - MUSCULAR WEAKNESS [None]
  - UNEVALUABLE EVENT [None]
  - GASTROOESOPHAGEAL REFLUX DISEASE [None]
  - CONFUSIONAL STATE [None]
  - RESTLESSNESS [None]
  - BACK PAIN [None]
  - STRESS [None]
  - FALL [None]
  - URINARY TRACT INFECTION [None]
  - BONE MARROW DISORDER [None]
  - APHAGIA [None]
  - ASTHMA [None]
  - MUSCULOSKELETAL PAIN [None]
  - SINUSITIS [None]
  - ORAL DISORDER [None]
  - BLOOD CREATINE PHOSPHOKINASE INCREASED [None]
  - DRUG EFFECT DECREASED [None]
  - DYSPNOEA [None]
  - HYPOKALAEMIA [None]
  - BLOOD 1,25-DIHYDROXYCHOLECALCIFEROL DECREASED [None]
